FAERS Safety Report 4586917-6 (Version None)
Quarter: 2005Q1

REPORT INFORMATION
  Report Type: 
  Country: None (occurrence: None)
  Receive Date: 20050215
  Receipt Date: 20050215
  Transmission Date: 20050727
  Serious: No
  Sender: FDA-Public Use
  Company Number: None

PATIENT
  Age: 61 Year
  Sex: Female
  Weight: 68.0396 kg

DRUGS (2)
  1. LEXAPRO [Suspect]
     Indication: DEPRESSION
     Dosage: 1 PO DAILY
     Route: 048
     Dates: start: 20050210, end: 20050211
  2. CLONEPIN [Concomitant]

REACTIONS (1)
  - DIARRHOEA [None]
